FAERS Safety Report 4932091-3 (Version None)
Quarter: 2006Q1

REPORT INFORMATION
  Report Type: 
  Country: None (occurrence: None)
  Receive Date: 20060303
  Receipt Date: 20060223
  Transmission Date: 20060701
  Serious: Yes (Other)
  Sender: FDA-Public Use
  Company Number: PHBS2006BR02994

PATIENT
  Age: 38 Year
  Sex: Male
  Weight: 80 kg

DRUGS (2)
  1. TRILEPTAL [Suspect]
     Indication: PANIC ATTACK
     Dosage: 300 MG, QHS
     Route: 048
     Dates: start: 20060221
  2. LUVOX [Concomitant]
     Dosage: 100 MG, TID
     Route: 048

REACTIONS (6)
  - HYPERHIDROSIS [None]
  - INSOMNIA [None]
  - MUSCLE SPASMS [None]
  - PALPITATIONS [None]
  - TACHYCARDIA [None]
  - TREMOR [None]
